FAERS Safety Report 7589336-3 (Version None)
Quarter: 2011Q2

REPORT INFORMATION
  Report Type: 
  Country: None (occurrence: None)
  Receive Date: 20110603
  Receipt Date: 20110331
  Transmission Date: 20111010
  Serious: No
  Sender: FDA-Public Use
  Company Number: 2011SP014730

PATIENT
  Age: 21 Year
  Sex: Female

DRUGS (3)
  1. METFORMIN HCL [Concomitant]
  2. SAPHRIS [Suspect]
     Indication: BIPOLAR DISORDER
     Dosage: SL
     Route: 060
     Dates: start: 20110201
  3. YAZ [Concomitant]

REACTIONS (3)
  - OVERDOSE [None]
  - HEADACHE [None]
  - ABDOMINAL DISCOMFORT [None]
